FAERS Safety Report 11349707 (Version 1)
Quarter: 2015Q3

REPORT INFORMATION
  Report Type: Spontaneous
  Country: US (occurrence: None)
  Receive Date: 20150806
  Receipt Date: 20150806
  Transmission Date: 20151125
  Serious: Yes (Death, Life-Threatening, Disabling)
  Sender: FDA-Public Use
  Company Number: None

PATIENT
  Sex: Female
  Weight: 56.7 kg

DRUGS (8)
  1. MIRALAX [Concomitant]
     Active Substance: POLYETHYLENE GLYCOL 3350
  2. SELEGILENE [Suspect]
     Active Substance: SELEGILINE
     Indication: COGNITIVE DISORDER
     Dosage: 1 CAPSULE 2X BY MOUTH
     Route: 048
     Dates: start: 20120920, end: 20150305
  3. REGLAN [Concomitant]
     Active Substance: METOCLOPRAMIDE HYDROCHLORIDE
  4. LATUDA [Concomitant]
     Active Substance: LURASIDONE HYDROCHLORIDE
  5. RESTASIS [Concomitant]
     Active Substance: CYCLOSPORINE
  6. OMEPRAZOLE. [Concomitant]
     Active Substance: OMEPRAZOLE
  7. GAPAPENTIN [Concomitant]
  8. MILK OF MAGNESIA [Concomitant]
     Active Substance: MAGNESIUM HYDROXIDE

REACTIONS (23)
  - Skin ulcer [None]
  - Impaired gastric emptying [None]
  - Seizure [None]
  - Dysarthria [None]
  - Dysgraphia [None]
  - Oral mucosal blistering [None]
  - Ulcer [None]
  - Vertigo [None]
  - Sleep apnoea syndrome [None]
  - Paraesthesia [None]
  - Bladder pain [None]
  - Muscular weakness [None]
  - Binocular eye movement disorder [None]
  - Pain [None]
  - Brain oedema [None]
  - Nystagmus [None]
  - Diplopia [None]
  - Reading disorder [None]
  - Balance disorder [None]
  - Insomnia [None]
  - Nasal disorder [None]
  - Bradycardia [None]
  - Dysphagia [None]
